FAERS Safety Report 5483944-1 (Version None)
Quarter: 2007Q4

REPORT INFORMATION
  Report Type: 
  Country: None (occurrence: None)
  Receive Date: 20071010
  Receipt Date: 20071010
  Transmission Date: 20080405
  Serious: Yes (Other)
  Sender: FDA-Public Use
  Company Number: None

PATIENT
  Age: 38 Year
  Sex: Female
  Weight: 77.1115 kg

DRUGS (1)
  1. LISINOPRIL [Suspect]
     Indication: HYPERTENSION
     Dosage: 1 TABLET ONCE A NIGHT PO
     Route: 048
     Dates: start: 20070801, end: 20071001

REACTIONS (18)
  - ACTIVITIES OF DAILY LIVING IMPAIRED [None]
  - COUGH [None]
  - DEPRESSION [None]
  - DIARRHOEA [None]
  - DIZZINESS [None]
  - DYSPNOEA [None]
  - HEADACHE [None]
  - HEAT EXHAUSTION [None]
  - LARYNGITIS [None]
  - MALAISE [None]
  - NASOPHARYNGITIS [None]
  - PHARYNGOLARYNGEAL PAIN [None]
  - PYREXIA [None]
  - RHINORRHOEA [None]
  - SINUS CONGESTION [None]
  - SUICIDAL IDEATION [None]
  - URINARY TRACT INFECTION [None]
  - URINE OUTPUT DECREASED [None]
